FAERS Safety Report 6895619-2 (Version None)
Quarter: 2010Q3

REPORT INFORMATION
  Report Type: 
  Country: None (occurrence: None)
  Receive Date: 20100802
  Receipt Date: 20100729
  Transmission Date: 20110219
  Serious: Yes (Hospitalization)
  Sender: FDA-Public Use
  Company Number: FR-BAUSCH-2010BL002918

PATIENT
  Age: 67 Year
  Sex: Female

DRUGS (2)
  1. CARTEOL LP 2% COLLYRE EN SOL RECIPIENT UNIDOSE [Suspect]
     Indication: INTRAOCULAR PRESSURE INCREASED
     Route: 047
     Dates: start: 20100521, end: 20100526
  2. PRAVASTATIN [Concomitant]
     Route: 048
     Dates: start: 20000101

REACTIONS (3)
  - DERMATITIS BULLOUS [None]
  - OROPHARYNGEAL BLISTERING [None]
  - PEMPHIGUS [None]
